FAERS Safety Report 9439221 (Version 1)
Quarter: 2013Q3

REPORT INFORMATION
  Report Type: Spontaneous
  Country: FR (occurrence: FR)
  Receive Date: 20130804
  Receipt Date: 20130804
  Transmission Date: 20140515
  Serious: Yes (Hospitalization)
  Sender: FDA-Public Use
  Company Number: FR-JNJFOC-20130718502

PATIENT
  Age: 91 Year
  Sex: Male

DRUGS (6)
  1. XARELTO [Suspect]
     Indication: CEREBROVASCULAR ACCIDENT PROPHYLAXIS
     Route: 048
     Dates: start: 20130625, end: 20130712
  2. XARELTO [Suspect]
     Indication: ATRIAL FIBRILLATION
     Route: 048
     Dates: start: 20130625, end: 20130712
  3. PRADAXA [Suspect]
     Indication: ATRIAL FIBRILLATION
     Route: 048
     Dates: start: 20130404, end: 20130624
  4. CARDENSIEL [Concomitant]
     Route: 065
  5. LASILIX [Concomitant]
     Route: 065
  6. INEXIUM [Concomitant]
     Route: 065

REACTIONS (1)
  - Microcytic anaemia [Recovered/Resolved]
